FAERS Safety Report 4435268-9 (Version None)
Quarter: 2004Q3

REPORT INFORMATION
  Report Type: 
  Country: None (occurrence: None)
  Receive Date: 20040826
  Receipt Date: 20040826
  Transmission Date: 20050211
  Serious: Yes (Other)
  Sender: FDA-Public Use
  Company Number: None

PATIENT
  Age: 73 Year
  Sex: Male
  Weight: 71.2 kg

DRUGS (18)
  1. DEPAKOTE [Suspect]
     Indication: BIPOLAR DISORDER
     Dosage: 250 MG QAM + QHS ORAL
     Route: 048
     Dates: start: 20040525, end: 20040611
  2. ARICEPT [Concomitant]
  3. DOCUSATE SODIUM [Concomitant]
  4. NOVOLIN 70/30 [Concomitant]
  5. ISOSORBIDE MONO [Concomitant]
  6. METOPROLOL [Concomitant]
  7. NORVASC [Concomitant]
  8. PLAVIX [Concomitant]
  9. OMEPRAZOLE [Concomitant]
  10. ZYPREXA [Concomitant]
  11. ACETAMINOPHEN [Concomitant]
  12. BISACODYL [Concomitant]
  13. CHLORPROMAZINE [Concomitant]
  14. NOVOLIN R INS SLIDING SCALE [Concomitant]
  15. LORAZEPAM [Concomitant]
  16. MAALOX FAST BLOCKER [Concomitant]
  17. MILK OF MAG [Concomitant]
  18. ALBUTEROL [Concomitant]

REACTIONS (2)
  - BLOOD AMYLASE INCREASED [None]
  - LIPASE INCREASED [None]
